FAERS Safety Report 16281701 (Version 5)
Quarter: 2019Q2

REPORT INFORMATION
  Report Type: Spontaneous
  Country: US (occurrence: US)
  Receive Date: 20190507
  Receipt Date: 20190521
  Transmission Date: 20190711
  Serious: No
  Sender: FDA-Public Use
  Company Number: US-PFIZER INC-2019189132

PATIENT
  Age: 68 Year
  Sex: Male
  Weight: 68.4 kg

DRUGS (6)
  1. LITHIUM. [Concomitant]
     Active Substance: LITHIUM
     Dosage: UNK
  2. ALPRAZOLAM. [Concomitant]
     Active Substance: ALPRAZOLAM
     Dosage: UNK
  3. GENOTROPIN MQ [Suspect]
     Active Substance: SOMATROPIN
     Dosage: UNK [IT IS 0.02]
  4. GENOTROPIN MQ [Suspect]
     Active Substance: SOMATROPIN
     Dosage: 0.2 MG, DAILY
  5. GENOTROPIN MQ [Suspect]
     Active Substance: SOMATROPIN
     Dosage: 0.1 MG, DAILY
  6. GENOTROPIN MQ [Suspect]
     Active Substance: SOMATROPIN
     Indication: HYPOTHALAMO-PITUITARY DISORDER
     Dosage: 0.2 MG, UNK (FOR 5 DAYS)

REACTIONS (5)
  - Drug ineffective [Unknown]
  - Anxiety [Unknown]
  - Wrong technique in device usage process [Unknown]
  - Device issue [Unknown]
  - Drug intolerance [Unknown]
